FAERS Safety Report 8617886-7 (Version None)
Quarter: 2012Q3

REPORT INFORMATION
  Report Type: 
  Country: None (occurrence: None)
  Receive Date: 20120824
  Receipt Date: 20120319
  Transmission Date: 20120928
  Serious: No
  Sender: FDA-Public Use
  Company Number: US-ASTRAZENECA-2012SE18895

PATIENT
  Sex: Male

DRUGS (4)
  1. SEREVENT [Concomitant]
  2. VITAMIN TAB [Concomitant]
  3. SYMBICORT [Suspect]
     Indication: CHRONIC OBSTRUCTIVE PULMONARY DISEASE
     Dosage: 1 PUFF, BID
     Route: 055
     Dates: start: 20111001
  4. THREE DIFFERENT EYE DROPS [Concomitant]
     Indication: GLAUCOMA

REACTIONS (2)
  - OFF LABEL USE [None]
  - VISUAL FIELD DEFECT [None]
